FAERS Safety Report 12856548 (Version 1)
Quarter: 2016Q4

REPORT INFORMATION
  Report Type: Spontaneous
  Country: JP (occurrence: JP)
  Receive Date: 20161018
  Receipt Date: 20161018
  Transmission Date: 20170207
  Serious: Yes (Hospitalization, Other)
  Sender: FDA-Public Use
  Company Number: PHHY2015JP128058

PATIENT
  Age: 58 Year
  Sex: Male

DRUGS (1)
  1. ARRANON [Suspect]
     Active Substance: NELARABINE
     Indication: PRECURSOR T-LYMPHOBLASTIC LYMPHOMA/LEUKAEMIA
     Dosage: 2500 MG, QD
     Route: 041
     Dates: start: 20140819, end: 20140823

REACTIONS (8)
  - Muscular weakness [Unknown]
  - Leukoencephalopathy [Unknown]
  - Neuropathy peripheral [Recovering/Resolving]
  - Hypoaesthesia [Unknown]
  - Monoplegia [Unknown]
  - Metastases to central nervous system [Unknown]
  - Precursor T-lymphoblastic lymphoma/leukaemia [Unknown]
  - Malignant neoplasm progression [Unknown]

NARRATIVE: CASE EVENT DATE: 20140910
